FAERS Safety Report 5883943-1 (Version None)
Quarter: 2008Q3

REPORT INFORMATION
  Report Type: 
  Country: None (occurrence: None)
  Receive Date: 20080915
  Receipt Date: 20080908
  Transmission Date: 20090109
  Serious: Yes (Disabling)
  Sender: FDA-Public Use
  Company Number: B0536090A

PATIENT
  Age: 55 Year
  Sex: Female

DRUGS (3)
  1. LAMOTRIGINE [Suspect]
     Route: 048
  2. BENDROFLUAZIDE [Concomitant]
  3. VALPROATE SODIUM [Concomitant]

REACTIONS (1)
  - PHOTOSENSITIVITY REACTION [None]
